FAERS Safety Report 5307999-X (Version None)
Quarter: 2007Q2

REPORT INFORMATION
  Report Type: 
  Country: None (occurrence: None)
  Receive Date: 20070426
  Receipt Date: 20070419
  Transmission Date: 20071010
  Serious: Yes (Hospitalization)
  Sender: FDA-Public Use
  Company Number: HQWYE692205MAR07

PATIENT
  Sex: Female

DRUGS (6)
  1. PANTOPRAZOLE SODIUM [Suspect]
     Indication: BILE OUTPUT INCREASED
     Route: 048
     Dates: start: 20040101
  2. DIGITOXIN TAB [Concomitant]
     Indication: VENTRICULAR FIBRILLATION
     Dosage: 1 DF 6/WEEK
     Route: 048
     Dates: start: 20040101
  3. DIGITOXIN TAB [Concomitant]
     Indication: VENTRICULAR FLUTTER
  4. EGAZIL DURETTER [Concomitant]
     Indication: GASTRIC DISORDER
     Dosage: .2 MG
     Route: 048
     Dates: start: 19910101
  5. FLUNIPAM [Concomitant]
     Indication: SLEEP DISORDER
     Dosage: 1 MG FREQUENCY UNSPECIFIED
     Dates: start: 20050101
  6. WARFARIN SODIUM [Concomitant]
     Dosage: DF SOME DAY
     Route: 048
     Dates: start: 20040101

REACTIONS (5)
  - CARDIAC FIBRILLATION [None]
  - CONDITION AGGRAVATED [None]
  - MUSCULOSKELETAL STIFFNESS [None]
  - NIGHT SWEATS [None]
  - PYREXIA [None]
